FAERS Safety Report 4634912-0 (Version None)
Quarter: 2005Q2

REPORT INFORMATION
  Report Type: 
  Country: None (occurrence: None)
  Receive Date: 20050412
  Receipt Date: 20050329
  Transmission Date: 20051028
  Serious: Yes (Hospitalization)
  Sender: FDA-Public Use
  Company Number: SUSI-2005-00187

PATIENT
  Age: 23 Year
  Sex: Male

DRUGS (5)
  1. PENTASA [Suspect]
     Indication: CROHN'S DISEASE
     Dosage: SEE IMAGE
     Route: 048
     Dates: start: 20041209, end: 20050117
  2. PENTASA [Suspect]
     Indication: CROHN'S DISEASE
     Dosage: SEE IMAGE
     Route: 048
     Dates: start: 20041101
  3. PENTASA [Suspect]
     Indication: CROHN'S DISEASE
     Dosage: SEE IMAGE
     Route: 048
     Dates: start: 20050221
  4. MERCAPTOPURINE [Suspect]
     Indication: CROHN'S DISEASE
     Dosage: 30 MG, ORAL
     Route: 048
     Dates: start: 20041225, end: 20050117
  5. LEVOFLOXACIN [Concomitant]

REACTIONS (5)
  - HAEMOGLOBIN DECREASED [None]
  - LEUKOPENIA [None]
  - PANCYTOPENIA [None]
  - PROCTALGIA [None]
  - THROMBOCYTOPENIA [None]
